FAERS Safety Report 7531589-1 (Version None)
Quarter: 2011Q2

REPORT INFORMATION
  Report Type: 
  Country: None (occurrence: None)
  Receive Date: 20110607
  Receipt Date: 20110607
  Transmission Date: 20111010
  Serious: Yes (Hospitalization)
  Sender: FDA-Public Use
  Company Number: None

PATIENT
  Sex: Male
  Weight: 70.2 kg

DRUGS (1)
  1. CYCLOPHOSPHAMIDE [Suspect]
     Dosage: 6290 MG

REACTIONS (4)
  - OPERATIVE HAEMORRHAGE [None]
  - POST PROCEDURAL COMPLICATION [None]
  - BLADDER PERFORATION [None]
  - URINARY BLADDER HAEMORRHAGE [None]
